FAERS Safety Report 24416596 (Version 2)
Quarter: 2024Q4

REPORT INFORMATION
  Report Type: Spontaneous
  Country: US (occurrence: US)
  Receive Date: 20241009
  Receipt Date: 20241226
  Transmission Date: 20250114
  Serious: Yes (Other)
  Sender: BAYER HEALTHCARE PHARMACEUTICALS INC.
  Company Number: US-BAYER-2024A142058

PATIENT
  Age: 35 Year
  Sex: Female

DRUGS (1)
  1. MIRENA [Suspect]
     Active Substance: LEVONORGESTREL
     Indication: Contraception
     Dosage: 20?G/DAY
     Route: 015
     Dates: start: 20191005, end: 20240926

REACTIONS (40)
  - Embedded device [None]
  - Pelvic inflammatory disease [Recovering/Resolving]
  - Device breakage [None]
  - Idiopathic intracranial hypertension [Recovering/Resolving]
  - Kidney infection [Recovering/Resolving]
  - Tunnel vision [Recovered/Resolved]
  - Uterine infection [Recovering/Resolving]
  - Illness [Recovering/Resolving]
  - Endometriosis [Recovering/Resolving]
  - Scar [Recovering/Resolving]
  - Abdominal pain upper [Recovering/Resolving]
  - Back pain [Recovering/Resolving]
  - Nausea [Recovering/Resolving]
  - Tremor [Recovering/Resolving]
  - Dizziness [Recovering/Resolving]
  - Haematuria [Recovering/Resolving]
  - Cold sweat [Recovering/Resolving]
  - Feeding disorder [Recovering/Resolving]
  - Feeling abnormal [Recovering/Resolving]
  - Procedural pain [Recovering/Resolving]
  - Migraine [Not Recovered/Not Resolved]
  - Tinnitus [Recovering/Resolving]
  - Vomiting [Recovering/Resolving]
  - Night sweats [Recovering/Resolving]
  - Pyrexia [Recovering/Resolving]
  - Vision blurred [Recovered/Resolved]
  - Diplopia [Recovered/Resolved]
  - Paraesthesia [Recovering/Resolving]
  - Hypoaesthesia [Recovering/Resolving]
  - Pain in extremity [Recovering/Resolving]
  - Pain in extremity [Recovering/Resolving]
  - Weight decreased [Recovering/Resolving]
  - Brain fog [Recovering/Resolving]
  - Clumsiness [Recovering/Resolving]
  - Fatigue [Recovering/Resolving]
  - Lymphadenopathy [Recovering/Resolving]
  - Cystitis [Recovering/Resolving]
  - Fungal infection [Recovering/Resolving]
  - Urinary tract infection [Recovering/Resolving]
  - Bacterial vaginosis [Recovering/Resolving]

NARRATIVE: CASE EVENT DATE: 20240915
